FAERS Safety Report 5608799-3 (Version None)
Quarter: 2008Q1

REPORT INFORMATION
  Report Type: 
  Country: None (occurrence: None)
  Receive Date: 20080131
  Receipt Date: 20080129
  Transmission Date: 20080703
  Serious: Yes (Hospitalization)
  Sender: FDA-Public Use
  Company Number: DK-BRISTOL-MYERS SQUIBB COMPANY-13874383

PATIENT
  Age: 31 Year
  Sex: Male

DRUGS (11)
  1. TAXOL [Suspect]
     Indication: GERM CELL CANCER
     Route: 042
     Dates: start: 20070726, end: 20070726
  2. ETOPOSIDE [Suspect]
     Indication: GERM CELL CANCER
     Route: 042
     Dates: start: 20070726, end: 20070730
  3. CISPLATIN [Suspect]
     Indication: GERM CELL CANCER
     Route: 042
     Dates: start: 20070726, end: 20070730
  4. BLEOMYCIN [Suspect]
     Indication: GERM CELL CANCER
     Route: 042
     Dates: start: 20070727, end: 20070727
  5. FILGRASTIM [Concomitant]
  6. PREDNISOLONE [Concomitant]
  7. PANTOPRAZOLE [Concomitant]
     Dates: start: 20070724
  8. APREPITANT [Concomitant]
  9. ONDANSETRON [Concomitant]
  10. METOCLOPRAMIDE HCL [Concomitant]
     Dates: start: 20070715
  11. LORAZEPAM [Concomitant]

REACTIONS (9)
  - ANAEMIA [None]
  - DIARRHOEA [None]
  - DIZZINESS [None]
  - FATIGUE [None]
  - FEBRILE NEUTROPENIA [None]
  - MOUTH ULCERATION [None]
  - NAUSEA [None]
  - STOMATITIS [None]
  - VOMITING [None]
